FAERS Safety Report 20647289 (Version 1)
Quarter: 2022Q1

REPORT INFORMATION
  Report Type: Spontaneous
  Country: US (occurrence: None)
  Receive Date: 20220328
  Receipt Date: 20220328
  Transmission Date: 20220423
  Serious: Yes (Hospitalization)
  Sender: FDA-Public Use
  Company Number: None

PATIENT
  Sex: Female

DRUGS (5)
  1. XGEVA [Suspect]
     Active Substance: DENOSUMAB
     Indication: Malignant nipple neoplasm female
     Dosage: OTHER QUANTITY : 120MG/1.7ML??INJECT 1.7ML UNDER THE SKIN (SUBCUTANEOUS  INJECTION) EVERY 28 DAYS
     Route: 058
     Dates: start: 20211020
  2. calcium tab 500mg [Concomitant]
  3. FULVESTRANT [Concomitant]
     Active Substance: FULVESTRANT
  4. IBRANCE [Concomitant]
     Active Substance: PALBOCICLIB
  5. KP VITAMIN D [Concomitant]

REACTIONS (1)
  - Therapy interrupted [None]
